FAERS Safety Report 7583398-5 (Version None)
Quarter: 2011Q2

REPORT INFORMATION
  Report Type: 
  Country: None (occurrence: None)
  Receive Date: 20110630
  Receipt Date: 20110614
  Transmission Date: 20111010
  Serious: Yes (Hospitalization, Other)
  Sender: FDA-Public Use
  Company Number: US-BAYER-201029270NA

PATIENT
  Age: 38 Year
  Sex: Female
  Weight: 76.19 kg

DRUGS (6)
  1. ONE-A-DAY [MINERALS NOS,VITAMINS NOS] [Concomitant]
  2. YASMIN [Suspect]
     Dosage: UNK
     Dates: start: 20010701, end: 20030601
  3. CALCIUM CARBONATE [Concomitant]
  4. NASACORT [Concomitant]
  5. +#8220;OLOX+#8221; (DERMATOLOGY) CREAM [Concomitant]
  6. ASCORBIC ACID [Concomitant]

REACTIONS (3)
  - PAIN [None]
  - CEREBROVASCULAR ACCIDENT [None]
  - CEREBRAL INFARCTION [None]
